FAERS Safety Report 16853957 (Version 2)
Quarter: 2025Q3

REPORT INFORMATION
  Report Type: Spontaneous
  Country: EU (occurrence: EU)
  Receive Date: 20190926
  Receipt Date: 20250813
  Transmission Date: 20251020
  Serious: Yes (Other)
  Sender: AUROBINDO
  Company Number: EU-BOEHRINGERINGELHEIM-2019-BI-100313

PATIENT
  Age: 75 Year
  Sex: Male

DRUGS (4)
  1. INDAPAMIDE [Suspect]
     Active Substance: INDAPAMIDE
     Indication: Hypertension
     Route: 065
  2. LERCANIDIPINE [Suspect]
     Active Substance: LERCANIDIPINE
     Indication: Hypertension
     Route: 065
  3. HYDROCHLOROTHIAZIDE [Suspect]
     Active Substance: HYDROCHLOROTHIAZIDE
     Indication: Hypertension
     Route: 065
  4. MICARDIS [Suspect]
     Active Substance: TELMISARTAN
     Indication: Hypertension
     Route: 065

REACTIONS (9)
  - Left ventricular hypertrophy [Unknown]
  - Renal artery arteriosclerosis [Unknown]
  - Hypertensive nephropathy [Unknown]
  - Hypertension [Unknown]
  - Aortic arteriosclerosis [Unknown]
  - Proteinuria [Unknown]
  - Chronic kidney disease [Unknown]
  - Renal artery restenosis [Unknown]
  - Drug ineffective [Unknown]
